FAERS Safety Report 16092504 (Version 1)
Quarter: 2019Q1

REPORT INFORMATION
  Report Type: Report from Study
  Country: MX (occurrence: MX)
  Receive Date: 20190319
  Receipt Date: 20190319
  Transmission Date: 20190418
  Serious: Yes (Other)
  Sender: FDA-Public Use
  Company Number: PHHY2019MX061544

PATIENT
  Sex: Female
  Weight: 44 kg

DRUGS (6)
  1. GALVUS MET [Suspect]
     Active Substance: METFORMIN HYDROCHLORIDE\VILDAGLIPTIN
     Indication: DIABETES MELLITUS
     Dosage: 2 DF, BID
     Route: 048
     Dates: start: 201901
  2. PINAVERIUM [Concomitant]
     Active Substance: PINAVERIUM BROMIDE
     Indication: PRODUCT USED FOR UNKNOWN INDICATION
     Dosage: 2 DF, QD (2 WEEKS AGO)
     Route: 048
  3. NUCLEO CMP FORTE [Concomitant]
     Indication: PAIN
     Dosage: 2 DF, BID
     Route: 048
     Dates: start: 20190112
  4. OMEPRAZOLE. [Suspect]
     Active Substance: OMEPRAZOLE
     Indication: FLATULENCE
  5. DIABION [Concomitant]
     Indication: VITAMIN SUPPLEMENTATION
     Dosage: 2 DF, BID
     Route: 048
     Dates: start: 20190112
  6. OMEPRAZOLE. [Suspect]
     Active Substance: OMEPRAZOLE
     Indication: ABDOMINAL DISCOMFORT
     Dosage: 2 DF, QD
     Route: 048

REACTIONS (2)
  - Fall [Unknown]
  - Blindness [Unknown]
